FAERS Safety Report 5385141-7 (Version None)
Quarter: 2007Q3

REPORT INFORMATION
  Report Type: 
  Country: None (occurrence: None)
  Receive Date: 20070709
  Receipt Date: 20070702
  Transmission Date: 20080115
  Serious: Yes (Life-Threatening)
  Sender: FDA-Public Use
  Company Number: 2007AL002643

PATIENT
  Age: 80 Year
  Sex: Female

DRUGS (6)
  1. TRAMADOL HCL [Suspect]
     Indication: PAIN IN EXTREMITY
     Dosage: 100 MG; QD; PO
     Route: 048
     Dates: start: 20070611, end: 20070612
  2. LOSARTAN POTASSIUM [Concomitant]
  3. ASPIRIN [Concomitant]
  4. CARVEDILOL [Concomitant]
  5. FUROSEMIDE [Concomitant]
  6. NICORANDIL [Concomitant]

REACTIONS (1)
  - CEREBROVASCULAR ACCIDENT [None]
